FAERS Safety Report 4519426-0 (Version None)
Quarter: 2004Q4

REPORT INFORMATION
  Report Type: 
  Country: None (occurrence: None)
  Receive Date: 20041202
  Receipt Date: 20041122
  Transmission Date: 20050328
  Serious: Yes (Other)
  Sender: FDA-Public Use
  Company Number: 2003125476

PATIENT
  Age: 48 Year
  Sex: Male
  Weight: 76 kg

DRUGS (4)
  1. TAHOR (ATORVASTATIN) [Suspect]
     Indication: HYPERCHOLESTEROLAEMIA
     Dosage: 10 MG (10 MG, 1 IN 1 D), ORAL
     Route: 048
     Dates: start: 20000406, end: 20031120
  2. ACEBUTOLOL HCL [Concomitant]
  3. ACETYLSALICYLIC ACID SRT [Concomitant]
  4. PERINDOPRIL (PERINDOPRIL) [Concomitant]

REACTIONS (4)
  - BLOOD CREATINE PHOSPHOKINASE INCREASED [None]
  - TENDON RUPTURE [None]
  - TENDONITIS [None]
  - WEIGHT DECREASED [None]
